FAERS Safety Report 9739420 (Version 2)
Quarter: 2013Q4

REPORT INFORMATION
  Report Type: Spontaneous
  Country: US (occurrence: US)
  Receive Date: 20131209
  Receipt Date: 20131209
  Transmission Date: 20140711
  Serious: Yes (Death)
  Sender: FDA-Public Use
  Company Number: US-BRISTOL-MYERS SQUIBB COMPANY-19005727

PATIENT
  Age: 45 Year
  Sex: Female

DRUGS (1)
  1. IXEMPRA [Suspect]
     Dosage: LAST DOSE WAS 20MAY2013
     Dates: end: 20130520

REACTIONS (1)
  - Malignant neoplasm progression [Fatal]
